FAERS Safety Report 21715853 (Version 3)
Quarter: 2022Q4

REPORT INFORMATION
  Report Type: Spontaneous
  Country: CA (occurrence: CA)
  Receive Date: 20221212
  Receipt Date: 20221222
  Transmission Date: 20230113
  Serious: Yes (Hospitalization, Other)
  Sender: FDA-Public Use
  Company Number: CA-PFIZER INC-202200829204

PATIENT
  Age: 67 Year
  Sex: Male
  Weight: 105 kg

DRUGS (1)
  1. RUXIENCE [Suspect]
     Active Substance: RITUXIMAB-PVVR
     Indication: Granulomatosis with polyangiitis
     Dosage: 500 MG, Q 6 MONTHS
     Route: 042
     Dates: start: 20220705

REACTIONS (9)
  - Haemothorax [Not Recovered/Not Resolved]
  - Rib fracture [Not Recovered/Not Resolved]
  - Fall [Unknown]
  - Dyspnoea [Recovering/Resolving]
  - Pain [Not Recovered/Not Resolved]
  - Off label use [Unknown]
  - Off label use [Unknown]
  - Intentional product use issue [Unknown]
  - Product prescribing error [Unknown]

NARRATIVE: CASE EVENT DATE: 20220101
